FAERS Safety Report 18181696 (Version 1)
Quarter: 2020Q3

REPORT INFORMATION
  Report Type: Spontaneous
  Country: US (occurrence: US)
  Receive Date: 20200821
  Receipt Date: 20200821
  Transmission Date: 20201103
  Serious: Yes (Other)
  Sender: FDA-Public Use
  Company Number: US-MYLANLABS-2020M1072110

PATIENT
  Age: 90 Year
  Sex: Female

DRUGS (2)
  1. ESTRADIOL TRANSDERMAL SYSTEM [Suspect]
     Active Substance: ESTRADIOL
     Indication: RHEUMATOID ARTHRITIS
  2. ESTRADIOL TRANSDERMAL SYSTEM [Suspect]
     Active Substance: ESTRADIOL
     Indication: MENOPAUSE
     Dosage: 0.05 MILLIGRAM, QD
     Route: 062
     Dates: start: 20200802

REACTIONS (3)
  - Drug ineffective [Not Recovered/Not Resolved]
  - Product adhesion issue [Not Recovered/Not Resolved]
  - Off label use [Unknown]

NARRATIVE: CASE EVENT DATE: 202008
